FAERS Safety Report 18923635 (Version 1)
Quarter: 2021Q1

REPORT INFORMATION
  Report Type: Other
  Country: IL (occurrence: IL)
  Receive Date: 20210222
  Receipt Date: 20210222
  Transmission Date: 20210420
  Serious: Yes (Death, Hospitalization)
  Sender: FDA-Public Use
  Company Number: IL-ROCHE-2775431

PATIENT
  Age: 89 Year
  Sex: Male

DRUGS (2)
  1. PREDNISONE. [Suspect]
     Active Substance: PREDNISONE
     Indication: PEMPHIGUS
     Route: 065
  2. RITUXIMAB. [Suspect]
     Active Substance: RITUXIMAB
     Indication: PEMPHIGUS
     Route: 041

REACTIONS (5)
  - Pneumonia [Unknown]
  - Hypotension [Unknown]
  - Septic shock [Fatal]
  - Urinary tract infection pseudomonal [Unknown]
  - Atrial fibrillation [Unknown]
